FAERS Safety Report 7250006-2 (Version None)
Quarter: 2011Q1

REPORT INFORMATION
  Report Type: 
  Country: None (occurrence: None)
  Receive Date: 20110128
  Receipt Date: 20110121
  Transmission Date: 20110831
  Serious: Yes (Other)
  Sender: FDA-Public Use
  Company Number: FR-KINGPHARMUSA00001-K201100098

PATIENT
  Age: 72 Year
  Sex: Female
  Weight: 95 kg

DRUGS (6)
  1. ALTACE [Suspect]
     Indication: HYPERTENSION
     Dosage: 1 DF, QD
     Route: 048
     Dates: start: 20070101
  2. TENORDATE [Suspect]
     Indication: HYPERTENSION
     Dosage: 1 DF, QD
     Route: 048
     Dates: start: 20070101
  3. HYDROCHLOROTHIAZIDE [Suspect]
     Indication: HYPERTENSION
     Dosage: 1 DF, QD
     Route: 048
     Dates: start: 20070101
  4. CRESTOR [Suspect]
     Indication: HYPERCHOLESTEROLAEMIA
     Dosage: 5 MG, QD
     Route: 048
     Dates: start: 20040101
  5. ZANIDIP [Concomitant]
     Dosage: UNK
     Dates: start: 20090101
  6. MEDIATOR [Suspect]
     Indication: CENTRAL OBESITY
     Dosage: 1 DF, TID
     Route: 048
     Dates: start: 20020101, end: 20090101

REACTIONS (5)
  - ARRHYTHMIA [None]
  - DIZZINESS [None]
  - AORTIC VALVE INCOMPETENCE [None]
  - MALAISE [None]
  - BRADYCARDIA [None]
